FAERS Safety Report 7132342-3 (Version None)
Quarter: 2010Q4

REPORT INFORMATION
  Report Type: 
  Country: None (occurrence: None)
  Receive Date: 20101130
  Receipt Date: 20101130
  Transmission Date: 20110411
  Serious: Yes (Hospitalization)
  Sender: FDA-Public Use
  Company Number: None

PATIENT
  Age: 13 Year
  Sex: Female
  Weight: 45.8133 kg

DRUGS (1)
  1. SINGULAIR [Suspect]
     Indication: ADENOIDAL HYPERTROPHY
     Dosage: 10 MG AT BEDTIME PO
     Route: 048
     Dates: start: 20100201, end: 20101122

REACTIONS (3)
  - DIET REFUSAL [None]
  - MAJOR DEPRESSION [None]
  - SUICIDE ATTEMPT [None]
